FAERS Safety Report 23894323 (Version 1)
Quarter: 2024Q2

REPORT INFORMATION
  Report Type: Spontaneous
  Country: UA (occurrence: UA)
  Receive Date: 20240524
  Receipt Date: 20240524
  Transmission Date: 20240716
  Serious: Yes (Other)
  Sender: FDA-Public Use
  Company Number: UA-AUROBINDO-AUR-APL-2024-023911

PATIENT
  Sex: Male

DRUGS (9)
  1. CEFTRIAXONE [Suspect]
     Active Substance: CEFTRIAXONE\CEFTRIAXONE SODIUM
     Indication: Antibiotic prophylaxis
     Dosage: 1.0 MILLIGRAM, TWO TIMES A DAY
     Route: 030
  2. MOXIFLOXACIN HYDROCHLORIDE [Suspect]
     Active Substance: MOXIFLOXACIN HYDROCHLORIDE\MOXIFLOXACIN HYDROCHLORIDE MONOHYDRATE
     Indication: COVID-19
     Dosage: 400 MILLIGRAM, DAILY
     Route: 065
  3. DEXAMETHASONE [Suspect]
     Active Substance: DEXAMETHASONE
     Indication: Antibiotic prophylaxis
     Dosage: 6 MILLIGRAM, DAILY
     Route: 065
  4. DEXAMETHASONE [Suspect]
     Active Substance: DEXAMETHASONE
     Dosage: 8 MILLIGRAM, DAILY
     Route: 042
  5. FONDAPARINUX [Suspect]
     Active Substance: FONDAPARINUX
     Indication: Anticoagulant therapy
     Dosage: 2.5 MILLIGRAM, DAILY (2.5 MG (0.5 ML) PER DAY SUBCUTANEOUSLY, ORAL)
     Route: 058
  6. DIETARY SUPPLEMENT [Suspect]
     Active Substance: DIETARY SUPPLEMENT
     Indication: Antibiotic prophylaxis
     Dosage: UNK
     Route: 065
  7. LINEZOLID [Suspect]
     Active Substance: LINEZOLID
     Indication: Antibiotic prophylaxis
     Dosage: 600 MILLIGRAM, ONCE A DAY
     Route: 042
  8. MOLNUPIRAVIR [Suspect]
     Active Substance: MOLNUPIRAVIR
     Indication: COVID-19
     Dosage: 800 MILLIGRAM, TWO TIMES A DAY (RECEIVED FROM 03/24/2023 TO 03/29/2023)
     Route: 065
  9. CAMPHORSULFONIC ACID, (?)-\PROCAINE [Suspect]
     Active Substance: CAMPHORSULFONIC ACID, (?)-\PROCAINE
     Indication: Antibiotic prophylaxis
     Dosage: UNK
     Route: 065

REACTIONS (6)
  - Nausea [Unknown]
  - Vomiting [Unknown]
  - Hallucination [Unknown]
  - Muscle spasms [Unknown]
  - Drug ineffective [Unknown]
  - Off label use [Unknown]
